FAERS Safety Report 25621451 (Version 2)
Quarter: 2025Q3

REPORT INFORMATION
  Report Type: Spontaneous
  Country: US (occurrence: US)
  Receive Date: 20250730
  Receipt Date: 20250821
  Transmission Date: 20251021
  Serious: No
  Sender: MERCK SHARP & DOHME LLC
  Company Number: US-009507513-2303899

PATIENT
  Sex: Male

DRUGS (7)
  1. KEYTRUDA [Suspect]
     Active Substance: PEMBROLIZUMAB
     Indication: Malignant melanoma stage III
     Dosage: 400-MG INFUSION EVERY 6WEEKS IV
     Route: 042
     Dates: start: 20221017, end: 20231005
  2. VALSARTAN [Concomitant]
     Active Substance: VALSARTAN
     Indication: Hypertension
     Route: 048
  3. ATORVASTATIN [Concomitant]
     Active Substance: ATORVASTATIN
     Indication: Hyperlipidaemia
     Route: 048
  4. CARBAMAZEPINE [Concomitant]
     Active Substance: CARBAMAZEPINE
     Indication: Trigeminal neuralgia
     Dosage: 400MG IN THE AM AND 400MG IN PM; TOTAL DAILY DOSE 800MG
     Route: 048
  5. EUTHYROX [Concomitant]
     Active Substance: LEVOTHYROXINE SODIUM
     Indication: Hypothyroidism
     Route: 048
  6. Sodium Fluoride 5000 [Concomitant]
     Indication: Dry mouth
  7. Chlorhexidine gluconate 0.12% mouthwash [Concomitant]
     Indication: Prophylaxis

REACTIONS (8)
  - Oral lichenoid reaction [Recovered/Resolved]
  - Myalgia [Recovered/Resolved]
  - Cancer fatigue [Recovered/Resolved]
  - Dry mouth [Recovered/Resolved]
  - Angular cheilitis [Recovered/Resolved]
  - Oral candidiasis [Recovered/Resolved]
  - Feeling hot [Recovered/Resolved]
  - Cough [Recovered/Resolved]

NARRATIVE: CASE EVENT DATE: 20230101
